FAERS Safety Report 22257749 (Version 2)
Quarter: 2023Q2

REPORT INFORMATION
  Report Type: Report from Study
  Country: US (occurrence: US)
  Receive Date: 20230427
  Receipt Date: 20230502
  Transmission Date: 20230721
  Serious: No
  Sender: FDA-Public Use
  Company Number: US-002147023-NVSC2023US093398

PATIENT
  Sex: Male

DRUGS (2)
  1. KETOCONAZOLE [Suspect]
     Active Substance: KETOCONAZOLE
     Indication: Psoriasis
     Route: 065
  2. METFORMIN [Suspect]
     Active Substance: METFORMIN HYDROCHLORIDE
     Indication: Psoriasis
     Route: 065

REACTIONS (11)
  - Melanocytic naevus [Unknown]
  - Macule [Unknown]
  - Papule [Unknown]
  - Actinic keratosis [Unknown]
  - Erythema [Unknown]
  - Skin exfoliation [Unknown]
  - Seborrhoeic keratosis [Unknown]
  - Inflammation [Unknown]
  - Scab [Unknown]
  - Product use in unapproved indication [Unknown]
  - Drug ineffective [Unknown]
